FAERS Safety Report 6721798-3 (Version None)
Quarter: 2010Q2

REPORT INFORMATION
  Report Type: 
  Country: None (occurrence: None)
  Receive Date: 20100512
  Receipt Date: 20100430
  Transmission Date: 20101027
  Serious: Yes (Other)
  Sender: FDA-Public Use
  Company Number: US-PERRIGO-10US009463

PATIENT
  Sex: Male

DRUGS (2)
  1. NAPROXEN SODIUM-PSEUDOEPHEDRINE HYDROCHLORIDE ER 253 [Suspect]
     Indication: SINUS HEADACHE
     Dosage: UNK, ONCE
     Route: 048
     Dates: start: 20100429, end: 20100429
  2. UNSPECIFIED ALLERGY MEDICATION [Concomitant]
     Indication: HYPERSENSITIVITY
     Dosage: UNK
     Route: 065

REACTIONS (8)
  - CHEST DISCOMFORT [None]
  - DIAPHRAGMALGIA [None]
  - DYSPNOEA [None]
  - HYPOAESTHESIA [None]
  - OEDEMA PERIPHERAL [None]
  - PARAESTHESIA [None]
  - SWOLLEN TONGUE [None]
  - THROAT TIGHTNESS [None]
